FAERS Safety Report 5820212-X (Version None)
Quarter: 2008Q3

REPORT INFORMATION
  Report Type: 
  Country: None (occurrence: None)
  Receive Date: 20080724
  Receipt Date: 20080723
  Transmission Date: 20090109
  Serious: Yes (Hospitalization)
  Sender: FDA-Public Use
  Company Number: PHEH1999US00753

PATIENT
  Sex: Male
  Weight: 70.5 kg

DRUGS (12)
  1. RAD 666 RAD+ [Suspect]
     Dosage: 0.75 MG, BID
     Route: 048
     Dates: start: 19990119
  2. NEORAL [Suspect]
     Route: 048
     Dates: start: 19990101
  3. MEDROL [Concomitant]
  4. CYTOVENE [Concomitant]
  5. BACTRIM SS (BACTRIM) [Concomitant]
  6. PROCARDIA XL [Concomitant]
  7. ASPIRIN [Concomitant]
  8. MYCELEX [Concomitant]
  9. MAALOX [Concomitant]
  10. COLACE (DOCUSATE SODIUM) [Concomitant]
  11. PEPCID [Concomitant]
  12. INSULIN [Concomitant]

REACTIONS (3)
  - BLOOD CREATININE INCREASED [None]
  - DRUG LEVEL INCREASED [None]
  - TRANSPLANT REJECTION [None]
